FAERS Safety Report 26139420 (Version 1)
Quarter: 2025Q4

REPORT INFORMATION
  Report Type: Report from Study
  Country: GB (occurrence: GB)
  Receive Date: 20251210
  Receipt Date: 20251210
  Transmission Date: 20260118
  Serious: Yes (Death)
  Sender: IPSEN BIOPHARMACEUTICALS, INC.
  Company Number: GB-IPSEN Group, Research and Development-2020-25715

PATIENT
  Sex: Female

DRUGS (2)
  1. LANREOTIDE ACETATE [Suspect]
     Active Substance: LANREOTIDE ACETATE
     Indication: Neuroendocrine tumour
     Dosage: 120MG/0.5ML
     Route: 058
  2. LANREOTIDE ACETATE [Suspect]
     Active Substance: LANREOTIDE ACETATE
     Dosage: LANREOTIDE IPSEN 120MG/0.5ML, SOLUTION FOR INJECTION, PRE-FILLED SYRINGES (IPSEN LTD) ONE PRE-FILLED DISPOSABLE INJECTION
     Route: 058

REACTIONS (2)
  - Death [Fatal]
  - Off label use [Unknown]
